FAERS Safety Report 8599612-3 (Version None)
Quarter: 2012Q3

REPORT INFORMATION
  Report Type: 
  Country: None (occurrence: None)
  Receive Date: 20120816
  Receipt Date: 20101115
  Transmission Date: 20120928
  Serious: Yes (Other)
  Sender: FDA-Public Use
  Company Number: CO-PFIZER INC-2012199810

PATIENT
  Age: 65 Year
  Sex: Female

DRUGS (7)
  1. LOSARTAN [Concomitant]
     Dosage: 50 MG, 2X/DAY
  2. LIPITOR [Suspect]
     Indication: DYSLIPIDAEMIA
     Dosage: 20 MG, UNK
  3. METFORMIN [Concomitant]
     Dosage: 850 MG, 2X/DAY
  4. OLMESARTAN MEDOXOMIL AND HYDROCHLOROTHIZIDE [Suspect]
     Indication: HYPERTENSION
     Dosage: 20 MG/12.5 MG, 1X/DAY
  5. AMLODIPINE [Concomitant]
     Dosage: 5 MG, 2X/DAY
  6. GLIBENCLAMIDE [Concomitant]
     Dosage: 5 MG, 2X/DAY
  7. ASPIRIN [Concomitant]
     Dosage: 100 MG, 1X/DAY

REACTIONS (1)
  - CHEST PAIN [None]
